FAERS Safety Report 9363542 (Version 1)
Quarter: 2013Q2

REPORT INFORMATION
  Report Type: Spontaneous
  Country: FR (occurrence: FR)
  Receive Date: 20130624
  Receipt Date: 20130624
  Transmission Date: 20140414
  Serious: Yes (Hospitalization)
  Sender: FDA-Public Use
  Company Number: FR-JNJFOC-20130611062

PATIENT
  Age: 67 Year
  Sex: Female

DRUGS (12)
  1. XARELTO [Suspect]
     Indication: PRODUCT USED FOR UNKNOWN INDICATION
     Route: 048
     Dates: start: 20130225, end: 20130306
  2. TRIATEC [Suspect]
     Indication: PRODUCT USED FOR UNKNOWN INDICATION
     Route: 048
     Dates: start: 20130304, end: 20130306
  3. TRIATEC COMP [Suspect]
     Indication: PRODUCT USED FOR UNKNOWN INDICATION
     Route: 048
     Dates: start: 201205, end: 20130304
  4. INIPOMP [Concomitant]
     Route: 048
     Dates: start: 201301
  5. METOPROLOL TARTRATE [Concomitant]
     Route: 048
     Dates: start: 201205
  6. SEVREDOL [Concomitant]
     Route: 048
     Dates: start: 201301
  7. FUMAFER [Concomitant]
     Route: 048
     Dates: start: 201301
  8. DAFALGAN CODEINE [Concomitant]
     Route: 048
     Dates: start: 201205
  9. LAROXYL [Concomitant]
     Route: 048
     Dates: start: 201205
  10. METFORMINE [Concomitant]
     Route: 048
     Dates: start: 201103, end: 20130305
  11. KARDEGIC [Concomitant]
     Route: 048
     Dates: start: 201205
  12. SIMVASTATINE [Concomitant]
     Route: 048
     Dates: start: 201205

REACTIONS (1)
  - Renal failure acute [Recovering/Resolving]
